FAERS Safety Report 14987691 (Version 1)
Quarter: 2018Q2

REPORT INFORMATION
  Report Type: Spontaneous
  Country: ES (occurrence: ES)
  Receive Date: 20180608
  Receipt Date: 20180608
  Transmission Date: 20180711
  Serious: Yes (Other)
  Sender: FDA-Public Use
  Company Number: PHHY2018ES016579

PATIENT
  Age: 46 Year
  Sex: Male
  Weight: 92.6 kg

DRUGS (1)
  1. SECUKINUMAB. [Suspect]
     Active Substance: SECUKINUMAB
     Indication: PSORIATIC ARTHROPATHY
     Dosage: 150 MG, QMO
     Route: 058
     Dates: start: 20180110

REACTIONS (1)
  - Iridocyclitis [Recovered/Resolved with Sequelae]

NARRATIVE: CASE EVENT DATE: 20180115
